FAERS Safety Report 14022327 (Version 1)
Quarter: 2017Q3

REPORT INFORMATION
  Report Type: Spontaneous
  Country: US (occurrence: US)
  Receive Date: 20170929
  Receipt Date: 20170929
  Transmission Date: 20171128
  Serious: Yes (Hospitalization)
  Sender: FDA-Public Use
  Company Number: None

PATIENT
  Age: 80 Year
  Sex: Female
  Weight: 45.9 kg

DRUGS (1)
  1. HALCION [Suspect]
     Active Substance: TRIAZOLAM
     Indication: INSOMNIA
     Route: 048
     Dates: start: 20170928, end: 20170928

REACTIONS (2)
  - Agitation [None]
  - Restlessness [None]

NARRATIVE: CASE EVENT DATE: 20170928
